APPROVED DRUG PRODUCT: DOCOSANOL
Active Ingredient: DOCOSANOL
Strength: 10%
Dosage Form/Route: CREAM;TOPICAL
Application: A214613 | Product #001
Applicant: DR REDDYS LABORATORIES LTD
Approved: Oct 3, 2025 | RLD: No | RS: No | Type: OTC